FAERS Safety Report 5487574-7 (Version None)
Quarter: 2007Q4

REPORT INFORMATION
  Report Type: 
  Country: None (occurrence: None)
  Receive Date: 20071015
  Receipt Date: 20071002
  Transmission Date: 20080405
  Serious: Yes (Hospitalization, Disabling)
  Sender: FDA-Public Use
  Company Number: 161686ISR

PATIENT
  Age: 32 Year
  Sex: Female

DRUGS (26)
  1. COPAXONE [Suspect]
     Indication: MULTIPLE SCLEROSIS
     Dosage: 20 MG (20 MG, 1-2) SUBCUTANEOUS, 20 MG (20 MG, 1 IN 1 D), SUBCUTANEOUS
     Route: 058
     Dates: start: 20050929, end: 20051017
  2. COPAXONE [Suspect]
     Indication: MULTIPLE SCLEROSIS
     Dosage: 20 MG (20 MG, 1-2) SUBCUTANEOUS, 20 MG (20 MG, 1 IN 1 D), SUBCUTANEOUS
     Route: 058
     Dates: start: 20051031
  3. INTERFERON BETA [Suspect]
     Indication: RELAPSING-REMITTING MULTIPLE SCLEROSIS
     Dosage: DOUBLE BLIND: 250 OR 500 MICROGRAM
     Dates: start: 20050725, end: 20050922
  4. PHENYTOIN [Suspect]
     Indication: CONVULSION
     Dosage: 1 GRAM (1 GRAM, 1 IN 1 D) INTRAVENOUS (NOT OTHERWISE SPECIFIED)
     Route: 042
     Dates: start: 20050916, end: 20050916
  5. PHENYTOIN [Suspect]
     Dosage: 300 MG (300 MG, 1 IN 1 D); ORAL, 300 MG (300 MG, 1 IN 1 D); ORAL
     Route: 048
     Dates: start: 20050917, end: 20050918
  6. PHENYTOIN [Suspect]
     Dosage: 300 MG (300 MG, 1 IN 1 D); ORAL, 300 MG (300 MG, 1 IN 1 D); ORAL
     Route: 048
     Dates: start: 20050920, end: 20050921
  7. FLUOXETINE [Suspect]
     Indication: DEPRESSION
     Dosage: 20 MG (20 MG, 1 IN 1 D); ORAL
     Route: 048
     Dates: start: 20050627, end: 20050902
  8. CHLORPROMAZINE [Suspect]
     Indication: DEPRESSION
     Dosage: 50 MG (50 MG, 1 IN 1 D); INTRAVENOUS (NOT OTHERWISE SPECIFIED)
     Route: 042
     Dates: start: 20050921, end: 20050926
  9. CARBAMAZEPINE [Suspect]
     Indication: CONVULSION
     Dosage: 800 MG (400 MG, 2 IN 1 D); ORAL
     Route: 048
     Dates: start: 20050922, end: 20051017
  10. AMITRIPTYLINE HCL [Suspect]
     Indication: DEPRESSION
     Dosage: 50 MG, (50 MG, 1 IN 1 D); ORAL
     Route: 048
     Dates: start: 20050927, end: 20051012
  11. DIANE [Concomitant]
  12. CAPTOPRIL [Concomitant]
  13. DIAZEPAM [Concomitant]
  14. BELACODID [Concomitant]
  15. PREDNISONE [Concomitant]
  16. DICLOFENAC [Concomitant]
  17. SERTRALINE [Concomitant]
  18. CLONAZEPAM [Concomitant]
  19. IBUPROFEN [Concomitant]
  20. PARACETAMOL [Concomitant]
  21. DIMENHYDRINATE [Concomitant]
  22. DIPYRON [Concomitant]
  23. TRAMADOL HCL [Concomitant]
  24. METOCLOPRAMIDE [Concomitant]
  25. RANITIDINE HCL [Concomitant]
  26. SODIUM CHLORIDE [Concomitant]

REACTIONS (5)
  - CHOLESTASIS [None]
  - CONDITION AGGRAVATED [None]
  - DEPRESSION [None]
  - HEPATITIS [None]
  - STEVENS-JOHNSON SYNDROME [None]
